FAERS Safety Report 6295725-X (Version None)
Quarter: 2009Q3

REPORT INFORMATION
  Report Type: 
  Country: None (occurrence: None)
  Receive Date: 20090803
  Receipt Date: 20090803
  Transmission Date: 20100115
  Serious: No
  Sender: FDA-Public Use
  Company Number: None

PATIENT
  Sex: Female
  Weight: 83.4619 kg

DRUGS (1)
  1. METFORMIN HCL [Suspect]
     Indication: TYPE 2 DIABETES MELLITUS
     Dosage: 500MG TID ONE PO TID  MADE SEVERAL ATTEMPTS BEFORE THIS DATE
     Route: 048
     Dates: start: 20090407

REACTIONS (1)
  - DIARRHOEA [None]
